FAERS Safety Report 8284949-8 (Version None)
Quarter: 2012Q2

REPORT INFORMATION
  Report Type: 
  Country: None (occurrence: None)
  Receive Date: 20120413
  Receipt Date: 20110518
  Transmission Date: 20120825
  Serious: No
  Sender: FDA-Public Use
  Company Number: US-ASTRAZENECA-2011SE15800

PATIENT
  Age: 51 Year
  Sex: Female
  Weight: 102.5 kg

DRUGS (5)
  1. NEXIUM [Suspect]
     Route: 048
     Dates: start: 20060101
  2. EFFEXOR [Concomitant]
  3. WELLBUTRIN [Concomitant]
  4. XNAX (PRN) [Concomitant]
  5. TAMOXIFEN CITRATE [Concomitant]

REACTIONS (4)
  - REGURGITATION [None]
  - ABDOMINAL PAIN [None]
  - GASTROOESOPHAGEAL REFLUX DISEASE [None]
  - LIVER FUNCTION TEST ABNORMAL [None]
